FAERS Safety Report 9747168 (Version 1)
Quarter: 2013Q4

REPORT INFORMATION
  Report Type: Spontaneous
  Country: US (occurrence: US)
  Receive Date: 20131211
  Receipt Date: 20131211
  Transmission Date: 20140711
  Serious: Yes (Hospitalization)
  Sender: FDA-Public Use
  Company Number: US-ROCHE-1312827

PATIENT
  Sex: Male

DRUGS (3)
  1. PEGASYS [Suspect]
     Indication: CHRONIC HEPATITIS C
     Route: 058
     Dates: start: 20130624
  2. RIBASPHERE [Suspect]
     Indication: CHRONIC HEPATITIS C
     Dosage: 600/400 IN DIVIDED DOSES
     Route: 065
     Dates: start: 20130624
  3. CIPROFLOXACIN [Concomitant]
     Route: 065

REACTIONS (9)
  - Hypotension [Recovering/Resolving]
  - Dementia [Unknown]
  - Delusion [Unknown]
  - Abasia [Unknown]
  - Fall [Unknown]
  - Mood swings [Recovered/Resolved]
  - Local swelling [Unknown]
  - Arthropod bite [Unknown]
  - Amnesia [Unknown]
